FAERS Safety Report 17267900 (Version 2)
Quarter: 2020Q1

REPORT INFORMATION
  Report Type: Spontaneous
  Country: US (occurrence: US)
  Receive Date: 20200114
  Receipt Date: 20200318
  Transmission Date: 20200409
  Serious: No
  Sender: FDA-Public Use
  Company Number: US-PFIZER INC-2020017590

PATIENT
  Age: 56 Year
  Sex: Female

DRUGS (12)
  1. IBRANCE [Suspect]
     Active Substance: PALBOCICLIB
     Dosage: 125 MG, CYCLIC, DAILY FOR 21 OUT OF 28 DAYS
     Route: 048
  2. HYDROCODONE BITARTRATE. [Concomitant]
     Active Substance: HYDROCODONE BITARTRATE
     Dosage: 20 MG, UNK
  3. ATORVASTATIN [Concomitant]
     Active Substance: ATORVASTATIN
     Dosage: UNK
  4. LETROZOLE. [Concomitant]
     Active Substance: LETROZOLE
     Dosage: UNK
  5. HYDROCODONE BITARTRATE. [Concomitant]
     Active Substance: HYDROCODONE BITARTRATE
     Dosage: 40 MG, UNK
  6. IBRANCE [Suspect]
     Active Substance: PALBOCICLIB
     Indication: BREAST CANCER FEMALE
     Dosage: 125 MG, CYCLIC, DAILY FOR 21 OUT OF 28 DAYS
     Route: 048
  7. MORPHINE SULFATE. [Concomitant]
     Active Substance: MORPHINE SULFATE
     Dosage: 10 MG, UNK
  8. BENAZEPRIL [Concomitant]
     Active Substance: BENAZEPRIL HYDROCHLORIDE
     Dosage: UNK
  9. ONDANSETRON [Concomitant]
     Active Substance: ONDANSETRON
     Dosage: UNK
  10. HYSINGLA ER [Concomitant]
     Active Substance: HYDROCODONE BITARTRATE
     Dosage: UNK
  11. ZOFRAN [Concomitant]
     Active Substance: ONDANSETRON HYDROCHLORIDE
     Dosage: 4 MG, UNK
  12. PROCHLORPERAZINE. [Concomitant]
     Active Substance: PROCHLORPERAZINE
     Dosage: UNK

REACTIONS (5)
  - Vomiting [Unknown]
  - Back pain [Unknown]
  - Malaise [Unknown]
  - Decreased appetite [Unknown]
  - Nausea [Unknown]
